FAERS Safety Report 5411227-4 (Version None)
Quarter: 2007Q3

REPORT INFORMATION
  Report Type: 
  Country: None (occurrence: None)
  Receive Date: 20070810
  Receipt Date: 20070807
  Transmission Date: 20080115
  Serious: Yes (Disabling)
  Sender: FDA-Public Use
  Company Number: B0482343A

PATIENT
  Age: 61 Year
  Sex: Female

DRUGS (4)
  1. FLUTIDE DISKUS [Suspect]
     Indication: ASTHMA
     Dosage: 200MCG TWICE PER DAY
     Route: 055
     Dates: start: 20070608, end: 20070731
  2. CINAL [Concomitant]
     Route: 048
  3. JUVELA [Concomitant]
     Route: 065
  4. UNKNOWN DRUG [Concomitant]
     Route: 065

REACTIONS (2)
  - PHARYNGOLARYNGEAL DISCOMFORT [None]
  - TONGUE OEDEMA [None]
